FAERS Safety Report 8530075-X (Version None)
Quarter: 2012Q3

REPORT INFORMATION
  Report Type: 
  Country: None (occurrence: None)
  Receive Date: 20120723
  Receipt Date: 20120718
  Transmission Date: 20120928
  Serious: Yes (Other)
  Sender: FDA-Public Use
  Company Number: PHHY2012AU062034

PATIENT
  Sex: Male

DRUGS (1)
  1. CLOZARIL [Suspect]
     Dates: start: 20120320, end: 20120709

REACTIONS (4)
  - HYPOTENSION [None]
  - ELECTROCARDIOGRAM QT PROLONGED [None]
  - CARDIAC DISORDER [None]
  - TACHYCARDIA [None]
